FAERS Safety Report 9067072 (Version 1)
Quarter: 2013Q1

REPORT INFORMATION
  Report Type: Spontaneous
  Country: GB (occurrence: GB)
  Receive Date: 20130214
  Receipt Date: 20130214
  Transmission Date: 20140127
  Serious: Yes (Life-Threatening, Disabling, Other)
  Sender: FDA-Public Use
  Company Number: GB-JNJFOC-20130204676

PATIENT
  Age: 44 Year
  Sex: Male
  Weight: 74.38 kg

DRUGS (4)
  1. ACETAMINOPHEN/CODEINE [Suspect]
     Indication: BACK PAIN
     Route: 048
     Dates: start: 20120412, end: 20120612
  2. AMITRIPTYLINE [Suspect]
     Indication: BACK PAIN
     Route: 048
     Dates: start: 20120402, end: 20120404
  3. GABAPENTIN [Suspect]
     Indication: BACK PAIN
     Route: 048
     Dates: start: 20120606, end: 20120615
  4. PREGABALIN [Concomitant]

REACTIONS (10)
  - Suicidal ideation [Recovering/Resolving]
  - Panic attack [Recovering/Resolving]
  - Obsessive thoughts [Recovering/Resolving]
  - Drug ineffective [Unknown]
  - Drug prescribing error [Unknown]
  - Personality disorder [Recovering/Resolving]
  - Depression [Recovering/Resolving]
  - Disturbance in attention [Recovering/Resolving]
  - Personality change [Recovering/Resolving]
  - Anxiety [Recovering/Resolving]
